FAERS Safety Report 23940214 (Version 2)
Quarter: 2024Q2

REPORT INFORMATION
  Report Type: Spontaneous
  Country: VN (occurrence: VN)
  Receive Date: 20240605
  Receipt Date: 20240610
  Transmission Date: 20240716
  Serious: Yes (Death, Hospitalization, Other)
  Sender: FDA-Public Use
  Company Number: VN-009507513-2406VNM000214

PATIENT
  Sex: Male

DRUGS (3)
  1. KEYTRUDA [Suspect]
     Active Substance: PEMBROLIZUMAB
     Indication: Lung neoplasm malignant
     Dosage: 200 MILLIGRAM, Q3W
     Dates: end: 20240304
  2. PEMETREXED [Concomitant]
     Active Substance: PEMETREXED
     Dosage: 500 MILLIGRAM
  3. CARBOPLATIN [Concomitant]
     Active Substance: CARBOPLATIN
     Dosage: AU 6

REACTIONS (1)
  - Interstitial lung disease [Fatal]

NARRATIVE: CASE EVENT DATE: 20240401
